FAERS Safety Report 8435776-X (Version None)
Quarter: 2012Q2

REPORT INFORMATION
  Report Type: 
  Country: None (occurrence: None)
  Receive Date: 20120614
  Receipt Date: 20120604
  Transmission Date: 20120825
  Serious: Yes (Other)
  Sender: FDA-Public Use
  Company Number: JP-ELI_LILLY_AND_COMPANY-JP201205008259

PATIENT
  Age: 65 Year
  Sex: Female

DRUGS (8)
  1. MOHRUS L [Concomitant]
     Dosage: UNK
     Route: 062
  2. CONIEL [Concomitant]
     Dosage: UNK
  3. EVISTA [Suspect]
     Indication: OSTEOPOROSIS
     Dosage: 60 MG, QD
     Route: 048
  4. LIPIDIL [Concomitant]
     Dosage: UNK
  5. PARIET                                  /JPN/ [Concomitant]
     Dosage: UNK
     Dates: start: 20120301
  6. LOSARTAN POTASSIUM [Concomitant]
     Dosage: UNK
  7. EPADEL                             /01682402/ [Concomitant]
     Dosage: UNK
  8. MUCOSTA [Concomitant]
     Dosage: UNK

REACTIONS (1)
  - ANGINA PECTORIS [None]
